FAERS Safety Report 5417748-2 (Version None)
Quarter: 2007Q3

REPORT INFORMATION
  Report Type: 
  Country: None (occurrence: None)
  Receive Date: 20070815
  Receipt Date: 20070815
  Transmission Date: 20080115
  Serious: Yes (Hospitalization)
  Sender: FDA-Public Use
  Company Number: None

PATIENT
  Sex: Female
  Weight: 58.9676 kg

DRUGS (1)
  1. WELLBUTRIN [Suspect]
     Dosage: PO
     Route: 048
     Dates: start: 20061011

REACTIONS (3)
  - PRURITUS [None]
  - RASH ERYTHEMATOUS [None]
  - SWELLING [None]
